FAERS Safety Report 26017596 (Version 1)
Quarter: 2025Q4

REPORT INFORMATION
  Report Type: Spontaneous
  Country: EU (occurrence: EU)
  Receive Date: 20251110
  Receipt Date: 20251110
  Transmission Date: 20260118
  Serious: Yes (Hospitalization)
  Sender: ACCORD
  Company Number: None

PATIENT
  Age: 55 Year
  Sex: Male
  Weight: 93 kg

DRUGS (2)
  1. ETOPOSIDE [Suspect]
     Active Substance: ETOPOSIDE
     Indication: Cutaneous T-cell lymphoma
     Dates: start: 20250908, end: 20250910
  2. IFOSFAMIDE [Suspect]
     Active Substance: IFOSFAMIDE
     Indication: Cutaneous T-cell lymphoma
     Dates: start: 20250908, end: 20250910

REACTIONS (1)
  - Body tinea [Recovering/Resolving]

NARRATIVE: CASE EVENT DATE: 20250912
